FAERS Safety Report 18407815 (Version 3)
Quarter: 2021Q4

REPORT INFORMATION
  Report Type: Report from Study
  Country: CN (occurrence: None)
  Receive Date: 20201020
  Receipt Date: 20211214
  Transmission Date: 20220303
  Serious: Yes (Hospitalization)
  Sender: FDA-Public Use
  Company Number: 2020SF24792

PATIENT
  Age: 18974 Day
  Sex: Female

DRUGS (13)
  1. DURVALUMAB [Suspect]
     Active Substance: DURVALUMAB
     Indication: Cervix carcinoma
     Route: 042
     Dates: start: 20200817, end: 20200817
  2. DURVALUMAB [Suspect]
     Active Substance: DURVALUMAB
     Indication: Cervix carcinoma
     Route: 042
     Dates: start: 20200914, end: 20200914
  3. CISPLATIN [Suspect]
     Active Substance: CISPLATIN
     Indication: Cervix carcinoma
     Route: 042
     Dates: start: 20200817, end: 20200817
  4. CISPLATIN [Suspect]
     Active Substance: CISPLATIN
     Indication: Cervix carcinoma
     Route: 042
     Dates: start: 20200824, end: 20200824
  5. CISPLATIN [Suspect]
     Active Substance: CISPLATIN
     Indication: Cervix carcinoma
     Route: 042
     Dates: start: 20200831, end: 20200831
  6. CISPLATIN [Suspect]
     Active Substance: CISPLATIN
     Indication: Cervix carcinoma
     Route: 042
     Dates: start: 20200907, end: 20200907
  7. CISPLATIN [Suspect]
     Active Substance: CISPLATIN
     Indication: Cervix carcinoma
     Route: 042
     Dates: start: 20200914, end: 20200914
  8. MAGNESIUM ISOGLYCYRRHIZINATE INJECTION [Concomitant]
     Indication: Hepatic function abnormal
     Dosage: 100.0 MG OTHER
     Route: 042
     Dates: start: 20200925, end: 20200926
  9. FERROUS SUCCINATE TABLETS [Concomitant]
     Indication: Anaemia
     Route: 048
     Dates: start: 20200921, end: 20200930
  10. RECOMBINANT HUMAN GRANULOCYTE COLONY STIMULATING FACTOR INJECTION [Concomitant]
     Indication: White blood cell count decreased
     Route: 058
     Dates: start: 20200904, end: 20200905
  11. RECOMBINANT HUMAN GRANULOCYTE COLONY STIMULATING FACTOR INJECTION [Concomitant]
     Indication: Neutrophil count decreased
     Route: 058
     Dates: start: 20200904, end: 20200905
  12. RECOMBINANT HUMAN GRANULOCYTE COLONY STIMULATING FACTOR INJECTION [Concomitant]
     Indication: White blood cell count decreased
     Route: 058
     Dates: start: 20200911, end: 20200912
  13. RECOMBINANT HUMAN GRANULOCYTE COLONY STIMULATING FACTOR INJECTION [Concomitant]
     Indication: Neutrophil count decreased
     Route: 058
     Dates: start: 20200911, end: 20200912

REACTIONS (1)
  - Hepatic function abnormal [Not Recovered/Not Resolved]

NARRATIVE: CASE EVENT DATE: 20200925
